FAERS Safety Report 9903510 (Version 2)
Quarter: 2014Q1

REPORT INFORMATION
  Report Type: Report from Study
  Country: CA (occurrence: CA)
  Receive Date: 20140217
  Receipt Date: 20140217
  Transmission Date: 20141002
  Serious: Yes (Other)
  Sender: FDA-Public Use
  Company Number: CA-ABBVIE-14P-028-1198455-00

PATIENT
  Age: 66 Year
  Sex: Female
  Weight: 51.3 kg

DRUGS (16)
  1. CELEBREX [Concomitant]
     Indication: RHEUMATOID ARTHRITIS
     Route: 048
     Dates: start: 2004
  2. OMEPRAZOLE [Concomitant]
     Indication: PRODUCT USED FOR UNKNOWN INDICATION
     Route: 048
     Dates: start: 2010
  3. METHOTREXATE [Concomitant]
     Indication: RHEUMATOID ARTHRITIS
     Route: 048
     Dates: start: 1994
  4. HYDROXYCHLOROQUINE [Concomitant]
     Indication: RHEUMATOID ARTHRITIS
     Route: 048
     Dates: start: 2012
  5. ATENOLOL [Concomitant]
     Indication: HYPERTENSION
     Route: 048
  6. BUPROPION [Concomitant]
     Indication: DEPRESSION
     Route: 048
     Dates: start: 2012
  7. SYMBICORT [Concomitant]
     Indication: ASTHMA
     Route: 055
  8. GABAPENTIN [Concomitant]
     Indication: PAIN MANAGEMENT
     Route: 048
     Dates: start: 2012
  9. CODEINE [Concomitant]
     Indication: PAIN MANAGEMENT
     Route: 048
     Dates: start: 2009
  10. ZOPICLONE [Concomitant]
     Indication: SLEEP DISORDER THERAPY
     Route: 048
     Dates: start: 2011
  11. ALPRAZOLAM [Concomitant]
     Indication: PANIC ATTACK
     Route: 048
     Dates: start: 2004
  12. VITAMIN D [Concomitant]
     Indication: VITAMIN SUPPLEMENTATION
     Route: 048
     Dates: start: 2004
  13. FOLIC ACID [Concomitant]
     Indication: VITAMIN SUPPLEMENTATION
     Route: 048
     Dates: start: 1994
  14. CALCIUM [Concomitant]
     Indication: MINERAL SUPPLEMENTATION
     Route: 048
     Dates: start: 2004
  15. HUMIRA [Suspect]
     Indication: RHEUMATOID ARTHRITIS
     Route: 058
     Dates: start: 20121129, end: 20140109
  16. PAROXETINE [Concomitant]
     Indication: DEPRESSION
     Route: 048
     Dates: start: 2010

REACTIONS (2)
  - Joint dislocation [Recovering/Resolving]
  - Osteoarthritis [Unknown]
